FAERS Safety Report 24138453 (Version 1)
Quarter: 2024Q3

REPORT INFORMATION
  Report Type: Spontaneous
  Country: US (occurrence: US)
  Receive Date: 20240725
  Receipt Date: 20240725
  Transmission Date: 20241017
  Serious: No
  Sender: BAUSCH AND LOMB
  Company Number: US-BAUSCH-BL-2024-010970

PATIENT
  Sex: Male

DRUGS (2)
  1. TRULANCE [Suspect]
     Active Substance: PLECANATIDE
     Indication: Product used for unknown indication
     Route: 065
  2. METAMUCIL [Suspect]
     Active Substance: PLANTAGO SEED
     Indication: Product used for unknown indication
     Route: 065

REACTIONS (2)
  - Abdominal discomfort [Unknown]
  - Nasopharyngitis [Not Recovered/Not Resolved]
